FAERS Safety Report 13280356 (Version 1)
Quarter: 2017Q1

REPORT INFORMATION
  Report Type: Spontaneous
  Country: US (occurrence: US)
  Receive Date: 20170228
  Receipt Date: 20170228
  Transmission Date: 20170428
  Serious: Yes (Hospitalization, Disabling)
  Sender: FDA-Public Use
  Company Number: None

PATIENT
  Age: 25 Year
  Sex: Female
  Weight: 92.7 kg

DRUGS (10)
  1. ZOLOFT [Concomitant]
     Active Substance: SERTRALINE HYDROCHLORIDE
  2. ACETAZOLAMIDE. [Concomitant]
     Active Substance: ACETAZOLAMIDE
  3. FLOVENT [Concomitant]
     Active Substance: FLUTICASONE PROPIONATE
  4. ALBUTEROL. [Concomitant]
     Active Substance: ALBUTEROL
  5. VALCYCLOVIR (VALTREX) [Concomitant]
  6. MONONESSA [Suspect]
     Active Substance: ETHINYL ESTRADIOL\NORGESTIMATE
     Indication: CONTRACEPTION
     Dosage: ?          QUANTITY:1 TABLET(S);?
     Route: 048
     Dates: start: 20161216, end: 20170131
  7. METFORMIN [Concomitant]
     Active Substance: METFORMIN HYDROCHLORIDE
  8. QUETIAPINE. [Concomitant]
     Active Substance: QUETIAPINE
  9. VITAMIN C [Concomitant]
     Active Substance: ASCORBIC ACID
  10. MELATONIN [Concomitant]
     Active Substance: MELATONIN

REACTIONS (9)
  - Malaise [None]
  - Visual impairment [None]
  - Migraine [None]
  - Anaemia [None]
  - Headache [None]
  - Feeling abnormal [None]
  - Head discomfort [None]
  - Papilloedema [None]
  - Hypertension [None]

NARRATIVE: CASE EVENT DATE: 20161216
